FAERS Safety Report 6488162-6 (Version None)
Quarter: 2009Q4

REPORT INFORMATION
  Report Type: 
  Country: None (occurrence: None)
  Receive Date: 20091210
  Receipt Date: 20091201
  Transmission Date: 20100525
  Serious: Yes (Other)
  Sender: FDA-Public Use
  Company Number: A0834052A

PATIENT
  Age: 61 Year
  Sex: Male

DRUGS (2)
  1. AVANDIA [Suspect]
     Dosage: 4MG PER DAY
     Route: 048
     Dates: start: 20050208, end: 20090101
  2. AVANDAMET [Suspect]
     Route: 048
     Dates: start: 20050907, end: 20051108

REACTIONS (3)
  - BLINDNESS [None]
  - MACULAR OEDEMA [None]
  - VISUAL ACUITY REDUCED [None]
